FAERS Safety Report 24415523 (Version 1)
Quarter: 2024Q4

REPORT INFORMATION
  Report Type: Spontaneous
  Country: GB (occurrence: GB)
  Receive Date: 20241009
  Receipt Date: 20241009
  Transmission Date: 20250115
  Serious: Yes (Other)
  Sender: GRANULES INDIA
  Company Number: GB-GRANULES-GB-2024GRALIT00445

PATIENT
  Age: 29 Year
  Sex: Male

DRUGS (7)
  1. FLUOXETINE [Suspect]
     Active Substance: FLUOXETINE HYDROCHLORIDE
     Indication: Major depression
     Route: 065
  2. FLUOXETINE [Suspect]
     Active Substance: FLUOXETINE HYDROCHLORIDE
     Route: 065
  3. BUPROPION [Concomitant]
     Active Substance: BUPROPION
     Indication: Major depression
     Route: 065
  4. BUPROPION [Concomitant]
     Active Substance: BUPROPION
     Route: 065
  5. ESKETAMINE [Concomitant]
     Active Substance: ESKETAMINE
     Route: 065
  6. ESKETAMINE [Concomitant]
     Active Substance: ESKETAMINE
     Dosage: TITRATED
     Route: 065
  7. ESKETAMINE [Concomitant]
     Active Substance: ESKETAMINE
     Route: 065

REACTIONS (3)
  - Erectile dysfunction [Unknown]
  - Dry mouth [Unknown]
  - Drug ineffective [Unknown]
